FAERS Safety Report 14128378 (Version 2)
Quarter: 2017Q4

REPORT INFORMATION
  Report Type: Spontaneous
  Country: US (occurrence: US)
  Receive Date: 20171026
  Receipt Date: 20171212
  Transmission Date: 20180321
  Serious: No
  Sender: FDA-Public Use
  Company Number: US-ASTRAZENECA-2017SF06944

PATIENT
  Sex: Male

DRUGS (1)
  1. BYDUREON [Suspect]
     Active Substance: EXENATIDE
     Route: 058
     Dates: start: 20150502

REACTIONS (4)
  - Injection site haemorrhage [Unknown]
  - Intentional product misuse [Unknown]
  - Product quality issue [Unknown]
  - Weight decreased [Unknown]
